FAERS Safety Report 19413915 (Version 1)
Quarter: 2021Q2

REPORT INFORMATION
  Report Type: Spontaneous
  Country: BR (occurrence: BR)
  Receive Date: 20210615
  Receipt Date: 20210615
  Transmission Date: 20210717
  Serious: Yes (Death)
  Sender: FDA-Public Use
  Company Number: BR-JNJFOC-20210628164

PATIENT
  Age: 44 Year
  Sex: Female

DRUGS (1)
  1. RIVAROXABAN [Suspect]
     Active Substance: RIVAROXABAN
     Indication: CEREBRAL VENOUS SINUS THROMBOSIS
     Dosage: 20 MG, QD
     Route: 048

REACTIONS (3)
  - Deep vein thrombosis [Fatal]
  - Off label use [Unknown]
  - Product use in unapproved indication [Unknown]
